FAERS Safety Report 25756628 (Version 4)
Quarter: 2025Q4

REPORT INFORMATION
  Report Type: Spontaneous
  Country: US (occurrence: US)
  Receive Date: 20250903
  Receipt Date: 20251219
  Transmission Date: 20260118
  Serious: Yes (Hospitalization, Other)
  Sender: SANOFI AVENTIS
  Company Number: US-SA-2025SA261289

PATIENT
  Age: 68 Year
  Sex: Female

DRUGS (1)
  1. KEVZARA [Suspect]
     Active Substance: SARILUMAB
     Indication: Immunology test abnormal
     Dosage: 150 MG, QOW
     Route: 058
     Dates: start: 202508

REACTIONS (5)
  - Cataract [Unknown]
  - Drug ineffective for unapproved indication [Unknown]
  - Peripheral swelling [Unknown]
  - Blood pressure abnormal [Unknown]
  - Off label use [Unknown]

NARRATIVE: CASE EVENT DATE: 20250101
